FAERS Safety Report 8589039-2 (Version None)
Quarter: 2012Q2

REPORT INFORMATION
  Report Type: 
  Country: None (occurrence: None)
  Receive Date: 20120423
  Receipt Date: 20110510
  Transmission Date: 20120825
  Serious: Yes (Hospitalization)
  Sender: FDA-Public Use
  Company Number: PHHY2011US44342

PATIENT
  Sex: Female

DRUGS (3)
  1. RANEXA [Suspect]
  2. CELEBREX [Concomitant]
  3. LOPRESSOR [Suspect]

REACTIONS (1)
  - BLOOD PRESSURE INCREASED [None]
